FAERS Safety Report 6280135-1 (Version None)
Quarter: 2009Q3

REPORT INFORMATION
  Report Type: 
  Country: None (occurrence: None)
  Receive Date: 20090723
  Receipt Date: 20090713
  Transmission Date: 20100115
  Serious: Yes (Hospitalization, Other)
  Sender: FDA-Public Use
  Company Number: PHHY2009GB03764

PATIENT
  Sex: Female

DRUGS (3)
  1. CLOZARIL [Suspect]
     Indication: SCHIZOPHRENIA
     Dosage: 300 MG/DAY
     Route: 048
     Dates: start: 20050627
  2. ISPAGHULA [Concomitant]
     Dosage: 7 GM/DAY
     Route: 048
     Dates: start: 20081104
  3. LACTULOSE [Concomitant]
     Dosage: 20 MG/DAY
     Route: 048
     Dates: start: 20081217

REACTIONS (15)
  - ANTINUCLEAR ANTIBODY INCREASED [None]
  - BLOOD CREATININE INCREASED [None]
  - BLOOD UREA INCREASED [None]
  - GLOMERULAR FILTRATION RATE DECREASED [None]
  - HAEMOGLOBIN DECREASED [None]
  - IRRITABLE BOWEL SYNDROME [None]
  - PROTEINURIA [None]
  - PYELONEPHRITIS [None]
  - RED BLOOD CELL SEDIMENTATION RATE INCREASED [None]
  - RENAL FAILURE CHRONIC [None]
  - SURGERY [None]
  - TACHYCARDIA [None]
  - TUBULOINTERSTITIAL NEPHRITIS [None]
  - URETHRAL OBSTRUCTION [None]
  - WEIGHT DECREASED [None]
